FAERS Safety Report 6202715-1 (Version None)
Quarter: 2009Q2

REPORT INFORMATION
  Report Type: 
  Country: None (occurrence: None)
  Receive Date: 20090526
  Receipt Date: 20090515
  Transmission Date: 20091009
  Serious: Yes (Hospitalization, Other)
  Sender: FDA-Public Use
  Company Number: PHHY2009BR19036

PATIENT
  Age: 91 Year
  Sex: Male

DRUGS (6)
  1. EXELON [Suspect]
     Indication: DEMENTIA ALZHEIMER'S TYPE
     Dosage: 1 PATCH PER DAY
     Route: 062
     Dates: start: 20090401
  2. ALOIS [Concomitant]
     Indication: DEMENTIA ALZHEIMER'S TYPE
     Dosage: 10 MG TWICE DAILY
     Route: 048
  3. GLIFAGE XR 500 [Concomitant]
     Dosage: ONCE DAILY
     Route: 048
  4. AMARYL [Concomitant]
     Indication: DIABETES MELLITUS
     Dosage: 4 MG TWICE DAILY
     Route: 048
  5. RISPERIDONE [Concomitant]
     Indication: DEMENTIA ALZHEIMER'S TYPE
     Dosage: 1/2 TABLET DAILY
  6. DEPAKOTE ER 500 MG (DIVALPROEX SODIUM) [Concomitant]
     Dosage: ONCE DAILY
     Route: 048

REACTIONS (5)
  - BLADDER CATHETERISATION [None]
  - HYPERSOMNIA [None]
  - INCORRECT DOSE ADMINISTERED [None]
  - URINARY TRACT INFECTION [None]
  - WHITE BLOOD CELL DISORDER [None]
